FAERS Safety Report 4535707-9 (Version None)
Quarter: 2004Q4

REPORT INFORMATION
  Report Type: 
  Country: None (occurrence: None)
  Receive Date: 20041223
  Receipt Date: 20031216
  Transmission Date: 20050328
  Serious: No
  Sender: FDA-Public Use
  Company Number: US-GLAXOSMITHKLINE-A0443332A

PATIENT
  Age: 35 Year
  Sex: Female

DRUGS (4)
  1. FLONASE [Suspect]
     Dosage: 50MCG TWICE PER DAY
     Route: 045
     Dates: start: 20031212, end: 20031215
  2. ADVAIR DISKUS 100/50 [Concomitant]
  3. LEVAQUIN [Concomitant]
  4. TYLENOL (CAPLET) [Concomitant]

REACTIONS (2)
  - DIZZINESS [None]
  - PYREXIA [None]
